FAERS Safety Report 7745175-1 (Version None)
Quarter: 2011Q3

REPORT INFORMATION
  Report Type: 
  Country: None (occurrence: None)
  Receive Date: 20110907
  Receipt Date: 20110825
  Transmission Date: 20111222
  Serious: Yes (Hospitalization)
  Sender: FDA-Public Use
  Company Number: 2011P1008532

PATIENT
  Age: 71 Year
  Sex: Female

DRUGS (2)
  1. ALBENDAZOLE (NO PREF. NAME) [Suspect]
     Dosage: 8000 MG; QD; PO      PO
     Route: 048
     Dates: start: 20110101
  2. ALBENDAZOLE (NO PREF. NAME) [Suspect]
     Dosage: 8000 MG; QD; PO      PO
     Route: 048
     Dates: start: 20110626, end: 20110719

REACTIONS (5)
  - NAUSEA [None]
  - VOMITING [None]
  - DECREASED APPETITE [None]
  - TRANSAMINASES INCREASED [None]
  - HYPERPYREXIA [None]
